FAERS Safety Report 7942159-5 (Version None)
Quarter: 2011Q4

REPORT INFORMATION
  Report Type: 
  Country: None (occurrence: None)
  Receive Date: 20111122
  Receipt Date: 20111107
  Transmission Date: 20120403
  Serious: Yes (Death)
  Sender: FDA-Public Use
  Company Number: 2011MA016330

PATIENT
  Age: 26 Year
  Sex: Female

DRUGS (2)
  1. MIRTAZAPINE [Suspect]
     Indication: DEPRESSED MOOD
     Dosage: 15 MG;PO
     Route: 048
     Dates: start: 20100930, end: 20101009
  2. MIRTAZAPINE [Suspect]
     Indication: DEPRESSED MOOD
     Dosage: 15 MG;PO
     Route: 048
     Dates: start: 20100930, end: 20101009

REACTIONS (1)
  - COMPLETED SUICIDE [None]
